FAERS Safety Report 4332217-9 (Version None)
Quarter: 2004Q1

REPORT INFORMATION
  Report Type: 
  Country: None (occurrence: None)
  Receive Date: 20040331
  Receipt Date: 20040322
  Transmission Date: 20041129
  Serious: Yes (Hospitalization)
  Sender: FDA-Public Use
  Company Number: 2002052306

PATIENT
  Age: 83 Year
  Sex: Female

DRUGS (9)
  1. GABAPENTIN [Suspect]
     Indication: NEUROPATHIC PAIN
     Dosage: 1200 MG (THREE TIMES DAILY), ORAL
     Route: 048
     Dates: start: 20011101, end: 20020716
  2. AMITRIPTYLINE HCL [Concomitant]
  3. GINKGO BILOBA (GINKGO BILOBA) [Concomitant]
  4. OMEPRAZOLE [Concomitant]
  5. VERAPAMIL [Concomitant]
  6. SPRIONOLACTONE (SPIRONOLACTONE) [Concomitant]
  7. METHADONE HYDROCHLORIDE (METHADONE HYDROCHLORIDE) [Concomitant]
  8. MELOXICAM (MELOXICAM) [Concomitant]
  9. HOMEOPATHIC DRUG [Concomitant]

REACTIONS (6)
  - ARRHYTHMIA [None]
  - ASTHENIA [None]
  - CARDIAC FAILURE [None]
  - DRUG TOXICITY [None]
  - DYSPNOEA [None]
  - GENERALISED OEDEMA [None]
